FAERS Safety Report 16401590 (Version 1)
Quarter: 2019Q2

REPORT INFORMATION
  Report Type: Spontaneous
  Country: US (occurrence: US)
  Receive Date: 20190606
  Receipt Date: 20190606
  Transmission Date: 20190711
  Serious: No
  Sender: FDA-Public Use
  Company Number: US-ELI_LILLY_AND_COMPANY-US201905015501

PATIENT

DRUGS (1)
  1. TALTZ [Suspect]
     Active Substance: IXEKIZUMAB
     Indication: PALMOPLANTAR PUSTULOSIS
     Dosage: 80 MG, 2/M
     Route: 065

REACTIONS (2)
  - Drug ineffective [Unknown]
  - Palmoplantar pustulosis [Unknown]
